FAERS Safety Report 7832590-0 (Version None)
Quarter: 2011Q4

REPORT INFORMATION
  Report Type: 
  Country: None (occurrence: None)
  Receive Date: 20111024
  Receipt Date: 20111013
  Transmission Date: 20120403
  Serious: Yes (Hospitalization)
  Sender: FDA-Public Use
  Company Number: BR-BIOGENIDEC-2011BI039528

PATIENT
  Age: 21 Year
  Sex: Female

DRUGS (2)
  1. UNSPECIFIED CONTRACEPTIVE [Concomitant]
  2. AVONEX [Suspect]
     Indication: MULTIPLE SCLEROSIS
     Route: 030
     Dates: start: 20100101, end: 20110901

REACTIONS (3)
  - PULMONARY EMBOLISM [None]
  - PLEURAL EFFUSION [None]
  - MUSCULOSKELETAL CHEST PAIN [None]
